FAERS Safety Report 4421380-7 (Version None)
Quarter: 2004Q3

REPORT INFORMATION
  Report Type: 
  Country: None (occurrence: None)
  Receive Date: 20040719
  Receipt Date: 20040421
  Transmission Date: 20050211
  Serious: No
  Sender: FDA-Public Use
  Company Number: 2004210307US

PATIENT
  Sex: Male

DRUGS (1)
  1. INSPRA [Suspect]

REACTIONS (2)
  - BLOOD POTASSIUM DECREASED [None]
  - CARDIOVERSION [None]
